FAERS Safety Report 24992570 (Version 2)
Quarter: 2025Q1

REPORT INFORMATION
  Report Type: Report from Study
  Country: US (occurrence: US)
  Receive Date: 20250221
  Receipt Date: 20250224
  Transmission Date: 20250409
  Serious: No
  Sender: ROCHE
  Company Number: US-ROCHE-10000213336

PATIENT
  Age: 56 Year
  Sex: Female

DRUGS (2)
  1. OCREVUS [Suspect]
     Active Substance: OCRELIZUMAB
     Indication: Relapsing multiple sclerosis
     Route: 065
     Dates: start: 20221227
  2. OCREVUS [Suspect]
     Active Substance: OCRELIZUMAB
     Route: 050

REACTIONS (3)
  - Osteoporosis [Unknown]
  - Urinary tract infection [Unknown]
  - Herpes virus infection [Unknown]
